FAERS Safety Report 10135350 (Version 1)
Quarter: 2014Q2

REPORT INFORMATION
  Report Type: Spontaneous
  Country: US (occurrence: US)
  Receive Date: 20140428
  Receipt Date: 20140428
  Transmission Date: 20141212
  Serious: Yes (Hospitalization)
  Sender: FDA-Public Use
  Company Number: US-EISAI INC-E2090-00513-SPO-US

PATIENT
  Age: 14 Year
  Sex: Male

DRUGS (5)
  1. ZONEGRAN [Suspect]
     Indication: CONVULSION
     Route: 048
     Dates: start: 2006
  2. ZONEGRAN [Suspect]
     Route: 048
  3. ZONEGRAN [Suspect]
     Route: 048
  4. RISPERDAL [Concomitant]
  5. CLONAZEPAM [Concomitant]

REACTIONS (2)
  - Empyema [Not Recovered/Not Resolved]
  - Pneumonia [Not Recovered/Not Resolved]
